FAERS Safety Report 10100594 (Version 1)
Quarter: 2014Q2

REPORT INFORMATION
  Report Type: Spontaneous
  Country: GB (occurrence: GB)
  Receive Date: 20140423
  Receipt Date: 20140423
  Transmission Date: 20141212
  Serious: Yes (Life-Threatening, Other)
  Sender: FDA-Public Use
  Company Number: GB-MYLANLABS-2014S1008435

PATIENT
  Age: 30 Year
  Sex: Female
  Weight: 60 kg

DRUGS (1)
  1. SERTRALINE [Suspect]

REACTIONS (3)
  - Mania [Recovered/Resolved]
  - Borderline personality disorder [Unknown]
  - Overdose [Unknown]
